FAERS Safety Report 16423256 (Version 1)
Quarter: 2019Q2

REPORT INFORMATION
  Report Type: Spontaneous
  Country: FR (occurrence: FR)
  Receive Date: 20190612
  Receipt Date: 20190612
  Transmission Date: 20190711
  Serious: Yes (Other)
  Sender: FDA-Public Use
  Company Number: FR-ALLERGAN-1924440US

PATIENT
  Sex: Female

DRUGS (1)
  1. PYLERA [Suspect]
     Active Substance: BISMUTH SUBCITRATE POTASSIUM\METRONIDAZOLE\TETRACYCLINE HYDROCHLORIDE
     Indication: HELICOBACTER DUODENAL ULCER
     Dosage: 12 DF, QD
     Route: 048
     Dates: start: 20181203, end: 20181206

REACTIONS (4)
  - Off label use [Unknown]
  - Oedema [Recovered/Resolved]
  - Rash [Recovered/Resolved]
  - Pruritus [Recovered/Resolved]

NARRATIVE: CASE EVENT DATE: 20181207
